FAERS Safety Report 13026987 (Version 1)
Quarter: 2016Q4

REPORT INFORMATION
  Report Type: Spontaneous
  Country: FR (occurrence: FR)
  Receive Date: 20161214
  Receipt Date: 20161214
  Transmission Date: 20170207
  Serious: Yes (Hospitalization)
  Sender: FDA-Public Use
  Company Number: FR-TEVA-718110ROM

PATIENT
  Age: 16 Year
  Sex: Female

DRUGS (4)
  1. MOMETASONE 50 MCG/DOSE [Concomitant]
     Dosage: 2 SPRAYS IN EACH NOSTRIL IN THE MORNING
     Route: 045
  2. KESTIN [Suspect]
     Active Substance: EBASTINE
     Indication: HYPERSENSITIVITY
     Dosage: 20 MILLIGRAM DAILY;
     Route: 048
     Dates: start: 20160824, end: 20160916
  3. ALLERGODIL 0.05% [Concomitant]
  4. SEASONIQUE [Suspect]
     Active Substance: ETHINYL ESTRADIOL\LEVONORGESTREL
     Dosage: 1 DOSAGE FORM = 150 MCG LEVONORGESTREL + 30 MCG-10 MCG ETHINYLESTRADIOL
     Route: 048
     Dates: end: 20160927

REACTIONS (1)
  - Hepatitis [Recovered/Resolved]

NARRATIVE: CASE EVENT DATE: 20160913
